FAERS Safety Report 24607610 (Version 3)
Quarter: 2024Q4

REPORT INFORMATION
  Report Type: Report from Study
  Country: JP (occurrence: JP)
  Receive Date: 20241112
  Receipt Date: 20241227
  Transmission Date: 20250114
  Serious: Yes (Other)
  Sender: CSL BEHRING
  Company Number: JP-BEH-2024183952

PATIENT
  Age: 24 Year
  Sex: Female
  Weight: 52 kg

DRUGS (8)
  1. BERINERT [Suspect]
     Active Substance: HUMAN C1-ESTERASE INHIBITOR
     Indication: Hereditary angioedema with C1 esterase inhibitor deficiency
     Dosage: 7 ML, BIW
     Route: 058
     Dates: start: 20230427, end: 20230907
  2. BERINERT [Suspect]
     Active Substance: HUMAN C1-ESTERASE INHIBITOR
     Indication: Hereditary angioedema
     Dosage: 7 ML, QW
     Route: 058
     Dates: start: 20230911, end: 20240219
  3. BERINERT [Suspect]
     Active Substance: HUMAN C1-ESTERASE INHIBITOR
     Indication: Prophylaxis
     Dosage: 7 ML, BIW
     Route: 058
     Dates: start: 20240226, end: 20240229
  4. BERINERT [Suspect]
     Active Substance: HUMAN C1-ESTERASE INHIBITOR
     Dosage: 7 ML, QW
     Route: 058
     Dates: start: 20240304
  5. TRANSAMIN [Concomitant]
     Active Substance: TRANEXAMIC ACID
     Indication: Hereditary angioedema with C1 esterase inhibitor deficiency
     Dosage: 750 MG
     Route: 048
     Dates: start: 20221207, end: 20230705
  6. TRANSAMIN [Concomitant]
     Active Substance: TRANEXAMIC ACID
     Indication: Prophylaxis
     Dosage: 1500 MG
     Route: 048
     Dates: start: 20240227, end: 20240312
  7. TRANSAMIN [Concomitant]
     Active Substance: TRANEXAMIC ACID
     Indication: Hereditary angioedema
  8. PREDONINE [Concomitant]
     Active Substance: PREDNISOLONE
     Indication: Hereditary angioedema with C1 esterase inhibitor deficiency
     Dosage: 10 MG, PRN

REACTIONS (14)
  - Hereditary angioedema [Unknown]
  - Oedema peripheral [Unknown]
  - Oedema peripheral [Unknown]
  - Complement factor C4 decreased [Unknown]
  - Hereditary angioedema [Recovered/Resolved]
  - Peripheral swelling [Recovered/Resolved]
  - Joint swelling [Recovered/Resolved]
  - Hereditary angioedema [Unknown]
  - Hereditary angioedema [Recovered/Resolved]
  - Fear of injection [Unknown]
  - Injection site pain [Recovered/Resolved]
  - Off label use [Unknown]
  - Pyrexia [Recovered/Resolved]
  - Pyrexia [Recovered/Resolved]

NARRATIVE: CASE EVENT DATE: 20230501
